FAERS Safety Report 26041030 (Version 1)
Quarter: 2025Q4

REPORT INFORMATION
  Report Type: Report from Study
  Country: CA (occurrence: CA)
  Receive Date: 20251113
  Receipt Date: 20251113
  Transmission Date: 20260117
  Serious: Yes (Hospitalization)
  Sender: ABBVIE
  Company Number: CA-ABBVIE-6546176

PATIENT
  Sex: Male

DRUGS (1)
  1. LUPRON [Suspect]
     Active Substance: LEUPROLIDE ACETATE
     Indication: Prostate cancer
     Dosage: 30 MG PRE-FILLED SYRINGE
     Route: 058
     Dates: start: 20230919, end: 20250728

REACTIONS (3)
  - Acute myocardial infarction [Unknown]
  - General physical health deterioration [Unknown]
  - Leukaemia [Unknown]

NARRATIVE: CASE EVENT DATE: 20251101
